FAERS Safety Report 4450399-5 (Version None)
Quarter: 2004Q3

REPORT INFORMATION
  Report Type: 
  Country: None (occurrence: None)
  Receive Date: 20040914
  Receipt Date: 20040909
  Transmission Date: 20050211
  Serious: Yes (Hospitalization)
  Sender: FDA-Public Use
  Company Number: MK200409-0079-1

PATIENT
  Sex: Female

DRUGS (1)
  1. ANAFRANIL [Suspect]
     Dosage: 100 MG DAILY (IN UTERO)

REACTIONS (10)
  - BASE EXCESS NEGATIVE [None]
  - BLOOD PH DECREASED [None]
  - CYANOSIS NEONATAL [None]
  - DRUG EXPOSURE DURING PREGNANCY [None]
  - DRUG TOXICITY [None]
  - DRUG WITHDRAWAL SYNDROME [None]
  - HYPERTONIA NEONATAL [None]
  - HYPOTONIA NEONATAL [None]
  - NEONATAL APNOEIC ATTACK [None]
  - PCO2 INCREASED [None]
